FAERS Safety Report 5352420-9 (Version None)
Quarter: 2007Q2

REPORT INFORMATION
  Report Type: 
  Country: None (occurrence: None)
  Receive Date: 20070607
  Receipt Date: 20070607
  Transmission Date: 20071010
  Serious: Yes (Life-Threatening, Hospitalization)
  Sender: FDA-Public Use
  Company Number: None

PATIENT
  Age: 9 Year
  Sex: Male
  Weight: 45.3597 kg

DRUGS (1)
  1. SEPTRA [Suspect]
     Indication: STAPHYLOCOCCAL SKIN INFECTION
     Dosage: PO
     Route: 048
     Dates: start: 20050607, end: 20050616

REACTIONS (2)
  - STEVENS-JOHNSON SYNDROME [None]
  - TOXIC EPIDERMAL NECROLYSIS [None]
